FAERS Safety Report 21581203 (Version 1)
Quarter: 2022Q4

REPORT INFORMATION
  Report Type: Spontaneous
  Country: US (occurrence: US)
  Receive Date: 20221111
  Receipt Date: 20221111
  Transmission Date: 20230113
  Serious: Yes (Other)
  Sender: FDA-Public Use
  Company Number: US-SUN PHARMACEUTICAL INDUSTRIES LTD-2022R1-363151

PATIENT
  Age: 30 Year
  Sex: Male
  Weight: 75 kg

DRUGS (9)
  1. NOREPINEPHRINE [Suspect]
     Active Substance: NOREPINEPHRINE
     Indication: General anaesthesia
     Dosage: UNK (0.2 MCG/KG/MIN)
     Route: 065
  2. NOREPINEPHRINE [Suspect]
     Active Substance: NOREPINEPHRINE
     Indication: Hypotension
     Dosage: UNK (0.08 MCG/KG/MIN)
     Route: 065
  3. NOREPINEPHRINE [Suspect]
     Active Substance: NOREPINEPHRINE
     Dosage: UNK (0.32 MCG/KG/MIN)
     Route: 065
  4. EPINEPHRINE [Suspect]
     Active Substance: EPINEPHRINE
     Indication: Positive cardiac inotropic effect
     Dosage: UNK (0.12 MCG/KG/MIN)
     Route: 065
  5. EPINEPHRINE [Suspect]
     Active Substance: EPINEPHRINE
     Dosage: UNK (0.14 MCG/KG/MIN)
     Route: 065
  6. EPINEPHRINE [Suspect]
     Active Substance: EPINEPHRINE
     Dosage: UNK (0.08 MCG/KG/MIN)
     Route: 065
  7. VASOPRESSIN [Suspect]
     Active Substance: VASOPRESSIN
     Indication: General anaesthesia
     Dosage: UNK (0.08 UNITS/MIN)
     Route: 065
  8. VASOPRESSIN [Suspect]
     Active Substance: VASOPRESSIN
     Indication: Hypotension
     Dosage: UNK (0.06 UNITS/MIN)
     Route: 065
  9. VASOPRESSIN [Suspect]
     Active Substance: VASOPRESSIN
     Dosage: UNK (0.04 UNITS/MIN)
     Route: 065

REACTIONS (1)
  - Therapy non-responder [Unknown]
